FAERS Safety Report 5215253-X (Version None)
Quarter: 2006Q4

REPORT INFORMATION
  Report Type: 
  Country: None (occurrence: None)
  Receive Date: 20061122
  Receipt Date: 20060404
  Transmission Date: 20070319
  Serious: Yes (Life-Threatening, Hospitalization, Other)
  Sender: FDA-Public Use
  Company Number: HQWYE727010APR06

PATIENT
  Age: 59 Year
  Sex: Male
  Weight: 68.55 kg

DRUGS (2)
  1. ZOSYN [Suspect]
     Indication: ABSCESS
     Dosage: 4.5 G 1X PER 8 HR, INTRAVENOUS
     Route: 042
     Dates: start: 20051010, end: 20051027
  2. SERTRALINE [Concomitant]

REACTIONS (5)
  - HEPATITIS [None]
  - MYALGIA [None]
  - NEUTROPENIA [None]
  - PYREXIA [None]
  - THROMBOCYTOPENIA [None]
